FAERS Safety Report 6713930-2 (Version None)
Quarter: 2010Q2

REPORT INFORMATION
  Report Type: 
  Country: None (occurrence: None)
  Receive Date: 20100506
  Receipt Date: 20100430
  Transmission Date: 20101027
  Serious: Yes (Other)
  Sender: FDA-Public Use
  Company Number: CHPA2010US07778

PATIENT
  Age: 73 Year
  Sex: Female
  Weight: 43.084 kg

DRUGS (1)
  1. SLOW FE BROWN (NCH) [Suspect]
     Indication: IRON DEFICIENCY ANAEMIA
     Dosage: 142 MG, QD
     Route: 048
     Dates: start: 20100401, end: 20100430

REACTIONS (3)
  - ABDOMINAL PAIN UPPER [None]
  - ENDOSCOPY GASTROINTESTINAL ABNORMAL [None]
  - GASTRIC HAEMORRHAGE [None]
